FAERS Safety Report 19093586 (Version 2)
Quarter: 2021Q2

REPORT INFORMATION
  Report Type: Report from Study
  Country: RU (occurrence: RU)
  Receive Date: 20210405
  Receipt Date: 20210629
  Transmission Date: 20210717
  Serious: No
  Sender: FDA-Public Use
  Company Number: RU-ALLERGAN-2113943US

PATIENT
  Age: 14 Year
  Sex: Female
  Weight: 68.5 kg

DRUGS (2)
  1. CARIPRAZINE HCL ? BP [Suspect]
     Active Substance: CARIPRAZINE HYDROCHLORIDE
     Indication: SCHIZOPHRENIA
     Dosage: 3 MG, QD
     Route: 048
     Dates: start: 20210315
  2. CARIPRAZINE HCL ? BP [Suspect]
     Active Substance: CARIPRAZINE HYDROCHLORIDE
     Dosage: 1.5 MG, QD
     Route: 048
     Dates: start: 20210128, end: 20210314

REACTIONS (1)
  - Myopia [Not Recovered/Not Resolved]

NARRATIVE: CASE EVENT DATE: 20210219
